FAERS Safety Report 7470982-2 (Version None)
Quarter: 2011Q2

REPORT INFORMATION
  Report Type: 
  Country: None (occurrence: None)
  Receive Date: 20110510
  Receipt Date: 20110509
  Transmission Date: 20111010
  Serious: No
  Sender: FDA-Public Use
  Company Number: US-PFIZER INC-2011099081

PATIENT
  Sex: Male

DRUGS (1)
  1. CHANTIX [Suspect]
     Dosage: UNK,
     Dates: start: 20080917

REACTIONS (4)
  - MENTAL DISORDER [None]
  - EMOTIONAL DISTRESS [None]
  - AGGRESSION [None]
  - ABNORMAL BEHAVIOUR [None]
